FAERS Safety Report 8207882-6 (Version None)
Quarter: 2012Q1

REPORT INFORMATION
  Report Type: 
  Country: None (occurrence: None)
  Receive Date: 20120314
  Receipt Date: 20120306
  Transmission Date: 20120608
  Serious: Yes (Other)
  Sender: FDA-Public Use
  Company Number: JP-PFIZER INC-2012060211

PATIENT
  Age: 25 Year
  Sex: Male

DRUGS (1)
  1. METHYLPREDNISOLONE [Suspect]
     Indication: IMMUNOSUPPRESSION
     Dosage: 8 MG/DAY

REACTIONS (3)
  - ANAEMIA [None]
  - BLADDER TRANSITIONAL CELL CARCINOMA [None]
  - GRANULOCYTOPENIA [None]
